FAERS Safety Report 9799695 (Version 3)
Quarter: 2015Q3

REPORT INFORMATION
  Report Type: Spontaneous
  Country: US (occurrence: US)
  Receive Date: 20140106
  Receipt Date: 20150806
  Transmission Date: 20151125
  Serious: No
  Sender: FDA-Public Use
  Company Number: US-GILEAD-2010-0031613

PATIENT
  Age: 88 Year
  Sex: Female
  Weight: 47.17 kg

DRUGS (18)
  1. GABAPENTIN. [Concomitant]
     Active Substance: GABAPENTIN
  2. MULTIVITAMIN [Concomitant]
     Active Substance: VITAMINS
  3. OXYCODONE [Concomitant]
     Active Substance: OXYCODONE
  4. TRAVATAN 0.004% EYE DROP [Concomitant]
  5. LETAIRIS [Suspect]
     Active Substance: AMBRISENTAN
     Indication: PULMONARY ARTERIAL HYPERTENSION
     Route: 048
     Dates: start: 20100708
  6. PRILOSEC [Concomitant]
     Active Substance: OMEPRAZOLE MAGNESIUM
  7. BRIMONIDINE 0.2% EYE DROP [Concomitant]
  8. TYLENOL EX-STR [Concomitant]
  9. RESTASIS 0.05% EYE EMULSION [Concomitant]
  10. REVATIO [Concomitant]
     Active Substance: SILDENAFIL CITRATE
  11. DIGOXIN. [Concomitant]
     Active Substance: DIGOXIN
  12. POTASSIUM CHLORIDE. [Concomitant]
     Active Substance: POTASSIUM CHLORIDE
  13. BUMETANIDE. [Concomitant]
     Active Substance: BUMETANIDE
  14. VITAMIN E [Concomitant]
     Active Substance: .ALPHA.-TOCOPHEROL
  15. ADULT LOW DOSE ASA [Concomitant]
  16. OXYGEN. [Concomitant]
     Active Substance: OXYGEN
  17. MISOPROSTOL. [Concomitant]
     Active Substance: MISOPROSTOL
  18. VITAMIN C [Concomitant]
     Active Substance: ASCORBIC ACID

REACTIONS (1)
  - Oedema [Unknown]
